FAERS Safety Report 25330400 (Version 1)
Quarter: 2025Q2

REPORT INFORMATION
  Report Type: Spontaneous
  Country: US (occurrence: None)
  Receive Date: 20250518
  Receipt Date: 20250518
  Transmission Date: 20250717
  Serious: Yes (Other)
  Sender: FDA-CTU
  Company Number: None

PATIENT

DRUGS (1)
  1. NP THYROID [Suspect]
     Active Substance: LEVOTHYROXINE\LIOTHYRONINE
     Indication: Hypothyroidism

REACTIONS (6)
  - Stomatitis [None]
  - Pollakiuria [None]
  - Frequent bowel movements [None]
  - Blood glucose increased [None]
  - Blood cholesterol increased [None]
  - Oedema [None]
